FAERS Safety Report 21736530 (Version 1)
Quarter: 2022Q4

REPORT INFORMATION
  Report Type: Spontaneous
  Country: US (occurrence: US)
  Receive Date: 20221215
  Receipt Date: 20221215
  Transmission Date: 20230112
  Serious: No
  Sender: FDA-Public Use
  Company Number: US-GLENMARK PHARMACEUTICALS-2022GMK076177

PATIENT

DRUGS (2)
  1. ESTRADIOL [Suspect]
     Active Substance: ESTRADIOL
     Indication: Vulvovaginal dryness
     Dosage: UNK
     Route: 067
  2. ESTRADIOL [Suspect]
     Active Substance: ESTRADIOL
     Dosage: UNK (DEFECTIVE BATCH)
     Route: 067
     Dates: start: 20221020

REACTIONS (2)
  - Expulsion of medication [Unknown]
  - Product solubility abnormal [Unknown]

NARRATIVE: CASE EVENT DATE: 20221021
